FAERS Safety Report 9134876 (Version 2)
Quarter: 2013Q4

REPORT INFORMATION
  Report Type: Spontaneous
  Country: GB (occurrence: GB)
  Receive Date: 20130304
  Receipt Date: 20131018
  Transmission Date: 20140711
  Serious: Yes (Death)
  Sender: FDA-Public Use
  Company Number: GB-JNJFOC-20130215649

PATIENT
  Age: 82 Year
  Sex: Male
  Weight: 62 kg

DRUGS (10)
  1. XARELTO [Suspect]
     Indication: CEREBROVASCULAR ACCIDENT PROPHYLAXIS
     Dosage: CUMULATIVE DOSE OF FIRST REACTION 660 MG
     Route: 048
     Dates: start: 20130107, end: 20130208
  2. XARELTO [Suspect]
     Indication: ATRIAL FIBRILLATION
     Dosage: CUMULATIVE DOSE OF FIRST REACTION 660 MG
     Route: 048
     Dates: start: 20130107, end: 20130208
  3. SIMVASTATIN [Concomitant]
     Route: 065
  4. FLUTICASONE [Concomitant]
     Route: 065
  5. LEVOTHYROXINE [Concomitant]
     Route: 065
  6. SALBUTAMOL [Concomitant]
     Route: 065
  7. SECURON [Concomitant]
     Route: 065
  8. FERROUS FUMARATE [Concomitant]
     Route: 065
  9. AMIODARONE [Concomitant]
     Route: 065
  10. IPRATROPIUM [Concomitant]
     Route: 065

REACTIONS (1)
  - Sudden death [Fatal]
